FAERS Safety Report 8996566 (Version 1)
Quarter: 2013Q1

REPORT INFORMATION
  Report Type: Spontaneous
  Country: US (occurrence: US)
  Receive Date: 20130104
  Receipt Date: 20130104
  Transmission Date: 20140127
  Serious: No
  Sender: FDA-Public Use
  Company Number: US-BAYER-2012-133305

PATIENT
  Age: 39 Year
  Sex: Female
  Weight: 61.22 kg

DRUGS (5)
  1. BETASERON [Suspect]
     Indication: RELAPSING-REMITTING MULTIPLE SCLEROSIS
     Dosage: 3 MG, UNK
  2. ENABLEX [Concomitant]
  3. CELEXA [Concomitant]
  4. MULTIVITAMIN [Concomitant]
  5. PROVIGIL [Concomitant]

REACTIONS (1)
  - Jaundice [Unknown]
